FAERS Safety Report 7828975-9 (Version None)
Quarter: 2011Q4

REPORT INFORMATION
  Report Type: 
  Country: None (occurrence: None)
  Receive Date: 20111020
  Receipt Date: 20111010
  Transmission Date: 20120403
  Serious: Yes (Life-Threatening, Hospitalization, Other)
  Sender: FDA-Public Use
  Company Number: DE-EISAI INC-E7389-01627-SPO-DE

PATIENT
  Sex: Female
  Weight: 82.5 kg

DRUGS (9)
  1. GRANOCYTE [Concomitant]
     Indication: LEUKOPENIA
     Dates: start: 20110819, end: 20110821
  2. DEXAMETHASONE [Concomitant]
     Route: 042
     Dates: start: 20110810, end: 20110810
  3. NAVOBAN [Concomitant]
     Route: 042
     Dates: start: 20110810, end: 20110811
  4. TORSEMIDE [Concomitant]
     Route: 048
     Dates: start: 20110902, end: 20110905
  5. HALAVEN [Suspect]
     Route: 041
     Dates: start: 20110824
  6. HALAVEN [Suspect]
     Route: 041
     Dates: start: 20110810, end: 20110810
  7. NAVOBAN [Concomitant]
     Indication: CHEMOTHERAPY
     Route: 042
     Dates: start: 20110824, end: 20110825
  8. FUROESE COMP [Concomitant]
     Route: 048
     Dates: end: 20110901
  9. DEXAMETHASONE [Concomitant]
     Indication: CHEMOTHERAPY
     Route: 042
     Dates: start: 20110824, end: 20110824

REACTIONS (2)
  - RENAL FAILURE ACUTE [None]
  - RHABDOMYOLYSIS [None]
